FAERS Safety Report 12009767 (Version 1)
Quarter: 2016Q1

REPORT INFORMATION
  Report Type: Spontaneous
  Country: GB (occurrence: GB)
  Receive Date: 20160205
  Receipt Date: 20160205
  Transmission Date: 20160526
  Serious: Yes (Disabling, Other)
  Sender: FDA-Public Use
  Company Number: GB-DRREDDYS-GER/UKI/16/0068184

PATIENT
  Age: 51 Year
  Sex: Male
  Weight: 107 kg

DRUGS (3)
  1. CELIPROLOL [Concomitant]
     Active Substance: CELIPROLOL
     Indication: PRODUCT USED FOR UNKNOWN INDICATION
  2. METFORMIN [Concomitant]
     Active Substance: METFORMIN HYDROCHLORIDE
     Indication: PRODUCT USED FOR UNKNOWN INDICATION
     Dosage: 1-2 X 500MG MODIFIED RELEASE TABLETS PER DAY.
  3. ATORVASTATIN [Suspect]
     Active Substance: ATORVASTATIN
     Indication: BLOOD CHOLESTEROL INCREASED
     Route: 048
     Dates: start: 20151104, end: 20160113

REACTIONS (9)
  - Agitated depression [Not Recovered/Not Resolved]
  - Arthralgia [Recovering/Resolving]
  - Mental impairment [Not Recovered/Not Resolved]
  - Rash erythematous [Not Recovered/Not Resolved]
  - Dyspnoea [Recovering/Resolving]
  - Limb discomfort [Recovering/Resolving]
  - Blood corticosterone decreased [Recovering/Resolving]
  - Cardiac discomfort [Recovering/Resolving]
  - Muscle fatigue [Recovering/Resolving]

NARRATIVE: CASE EVENT DATE: 20151111
